FAERS Safety Report 8556315-9 (Version None)
Quarter: 2012Q3

REPORT INFORMATION
  Report Type: 
  Country: None (occurrence: None)
  Receive Date: 20120801
  Receipt Date: 20120731
  Transmission Date: 20120928
  Serious: No
  Sender: FDA-Public Use
  Company Number: US-PFIZER INC-2012185736

PATIENT

DRUGS (1)
  1. GEODON [Suspect]
     Dosage: 60 MG, UNK

REACTIONS (1)
  - MALAISE [None]
